FAERS Safety Report 11517150 (Version 1)
Quarter: 2015Q3

REPORT INFORMATION
  Report Type: Spontaneous
  Country: US (occurrence: US)
  Receive Date: 20150917
  Receipt Date: 20150917
  Transmission Date: 20151125
  Serious: Yes (Other)
  Sender: FDA-Public Use
  Company Number: US-GLAXOSMITHKLINE-US2015GSK132919

PATIENT
  Age: 67 Year
  Sex: Female

DRUGS (1)
  1. VENTOLIN [Suspect]
     Active Substance: ALBUTEROL SULFATE
     Indication: ASTHMA
     Dosage: UNK
     Dates: end: 2015

REACTIONS (6)
  - Radiotherapy [Unknown]
  - Asthma [Unknown]
  - Precancerous cells present [Unknown]
  - Wheezing [Unknown]
  - Hypersensitivity [Unknown]
  - Surgery [Unknown]

NARRATIVE: CASE EVENT DATE: 201506
